FAERS Safety Report 7918878-3 (Version None)
Quarter: 2011Q4

REPORT INFORMATION
  Report Type: 
  Country: None (occurrence: None)
  Receive Date: 20111116
  Receipt Date: 20111107
  Transmission Date: 20120403
  Serious: Yes (Other)
  Sender: FDA-Public Use
  Company Number: PHHY2009JP39917

PATIENT
  Sex: Female

DRUGS (1)
  1. TASIGNA [Suspect]
     Indication: CHRONIC MYELOID LEUKAEMIA
     Dosage: 800 MG/DAY
     Route: 048
     Dates: start: 20090616, end: 20090624

REACTIONS (7)
  - PYREXIA [None]
  - HAEMOGLOBIN DECREASED [None]
  - EOSINOPHIL COUNT INCREASED [None]
  - BLOOD BILIRUBIN INCREASED [None]
  - RED BLOOD CELL COUNT DECREASED [None]
  - BLOOD GLUCOSE INCREASED [None]
  - ASCITES [None]
